FAERS Safety Report 25350838 (Version 2)
Quarter: 2025Q3

REPORT INFORMATION
  Report Type: Report from Study
  Country: US (occurrence: US)
  Receive Date: 20250523
  Receipt Date: 20250811
  Transmission Date: 20251021
  Serious: No
  Sender: ACADIA PHARMACEUTICALS
  Company Number: US-ACADIA PHARMACEUTICALS INC.-ACA-2025-PIM-006017

PATIENT
  Sex: Female

DRUGS (7)
  1. NUPLAZID [Suspect]
     Active Substance: PIMAVANSERIN TARTRATE
     Indication: Mental disorder
     Dosage: 34 MILLIGRAM, QD (EVERY MORNING)
     Route: 048
     Dates: start: 20241210
  2. NUPLAZID [Suspect]
     Active Substance: PIMAVANSERIN TARTRATE
     Indication: Parkinson^s disease
  3. CLONAZEPAM [Concomitant]
     Active Substance: CLONAZEPAM
  4. GOCOVRI [Concomitant]
     Active Substance: AMANTADINE
  5. LISINOPRIL [Concomitant]
     Active Substance: LISINOPRIL
  6. PRAVASTATIN [Concomitant]
     Active Substance: PRAVASTATIN
  7. RYTARY [Concomitant]
     Active Substance: CARBIDOPA\LEVODOPA

REACTIONS (7)
  - Muscle spasms [Unknown]
  - Paraesthesia [Unknown]
  - Feeling jittery [Not Recovered/Not Resolved]
  - Anxiety [Not Recovered/Not Resolved]
  - Constipation [Unknown]
  - Confusional state [Unknown]
  - Gait disturbance [Unknown]
